FAERS Safety Report 7365143-1 (Version None)
Quarter: 2011Q1

REPORT INFORMATION
  Report Type: 
  Country: None (occurrence: None)
  Receive Date: 20110321
  Receipt Date: 20110309
  Transmission Date: 20110831
  Serious: Yes (Other)
  Sender: FDA-Public Use
  Company Number: GB-PURDUE-USA-2011-0065427

PATIENT
  Age: 72 Year
  Sex: Female
  Weight: 86.3 kg

DRUGS (12)
  1. AMIODARONE HCL [Concomitant]
     Indication: PRODUCT USED FOR UNKNOWN INDICATION
     Dosage: UNK
     Dates: start: 20101116, end: 20110202
  2. TRAMADOL (SIMILAR TO NDA 21-745) [Suspect]
     Indication: PRODUCT USED FOR UNKNOWN INDICATION
  3. VALSARTAN [Concomitant]
     Indication: PRODUCT USED FOR UNKNOWN INDICATION
     Dosage: UNK
     Dates: start: 20101116, end: 20110202
  4. RABEPRAZOLE SODIUM [Concomitant]
     Indication: PRODUCT USED FOR UNKNOWN INDICATION
  5. ASPIRIN [Concomitant]
     Indication: PRODUCT USED FOR UNKNOWN INDICATION
     Dosage: UNK
     Dates: start: 20101116, end: 20110110
  6. ASPIRIN [Concomitant]
     Dosage: UNK
     Dates: end: 20110304
  7. SIMVASTATIN [Concomitant]
     Indication: PRODUCT USED FOR UNKNOWN INDICATION
     Dosage: UNK
     Dates: start: 20101116, end: 20110110
  8. VALSARTAN [Concomitant]
     Dosage: UNK
     Dates: end: 20110304
  9. AMIODARONE HCL [Concomitant]
     Dosage: UNK
     Dates: end: 20110304
  10. BETAMETHASONE VALERATE [Concomitant]
     Indication: PRODUCT USED FOR UNKNOWN INDICATION
  11. IBUPROFEN [Concomitant]
     Indication: PRODUCT USED FOR UNKNOWN INDICATION
     Dosage: UNK
     Dates: end: 20110303
  12. SIMVASTATIN [Concomitant]
     Dosage: UNK
     Dates: end: 20110304

REACTIONS (1)
  - AGEUSIA [None]
